FAERS Safety Report 13866908 (Version 1)
Quarter: 2017Q3

REPORT INFORMATION
  Report Type: Spontaneous
  Country: IT (occurrence: IT)
  Receive Date: 20170814
  Receipt Date: 20170814
  Transmission Date: 20171127
  Serious: Yes (Death, Other)
  Sender: FDA-Public Use
  Company Number: IT-CASPER PHARMA LLC-B17-0067-AE

PATIENT

DRUGS (2)
  1. IMURAN [Suspect]
     Active Substance: AZATHIOPRINE
     Indication: COLITIS ULCERATIVE
     Dosage: 2.5 MG/KG, QD
     Route: 065
  2. MESALAZINE [Concomitant]
     Active Substance: MESALAMINE
     Indication: COLITIS ULCERATIVE
     Dosage: UNK
     Route: 061

REACTIONS (4)
  - Neuroendocrine carcinoma [Unknown]
  - Autoimmune haemolytic anaemia [Unknown]
  - Product use in unapproved indication [None]
  - Hepatic failure [Fatal]
